FAERS Safety Report 8235696-X (Version None)
Quarter: 2012Q1

REPORT INFORMATION
  Report Type: 
  Country: None (occurrence: None)
  Receive Date: 20120326
  Receipt Date: 20120320
  Transmission Date: 20120608
  Serious: Yes (Other)
  Sender: FDA-Public Use
  Company Number: US-PFIZER INC-2012073499

PATIENT
  Sex: Female
  Weight: 54.422 kg

DRUGS (3)
  1. LYRICA [Suspect]
     Dosage: 75 MG, 2X/DAY
  2. NEURONTIN [Suspect]
     Dosage: UNK
  3. LYRICA [Suspect]
     Indication: NEURALGIA
     Dosage: 75 MG, 3X/DAY

REACTIONS (15)
  - BLOOD POTASSIUM DECREASED [None]
  - ABDOMINAL DISTENSION [None]
  - TONGUE BLISTERING [None]
  - DIZZINESS [None]
  - OROPHARYNGEAL PAIN [None]
  - MALAISE [None]
  - WEIGHT INCREASED [None]
  - OEDEMA PERIPHERAL [None]
  - DRY MOUTH [None]
  - BACK PAIN [None]
  - ACTIVITIES OF DAILY LIVING IMPAIRED [None]
  - DRUG INEFFECTIVE [None]
  - PAIN [None]
  - MOBILITY DECREASED [None]
  - LOCAL SWELLING [None]
